FAERS Safety Report 14471391 (Version 1)
Quarter: 2018Q1

REPORT INFORMATION
  Report Type: Spontaneous
  Country: CA (occurrence: CA)
  Receive Date: 20180131
  Receipt Date: 20180131
  Transmission Date: 20180509
  Serious: Yes (Other)
  Sender: FDA-Public Use
  Company Number: CA-TEVA-2018-CA-854333

PATIENT
  Age: 61 Year
  Sex: Male
  Weight: 100 kg

DRUGS (15)
  1. CIPRALEX [Concomitant]
     Active Substance: ESCITALOPRAM OXALATE
  2. ACTONEL [Suspect]
     Active Substance: RISEDRONATE SODIUM
     Indication: PRODUCT USED FOR UNKNOWN INDICATION
     Route: 065
  3. FOLIC ACID. [Concomitant]
     Active Substance: FOLIC ACID
  4. LOSEC [Concomitant]
     Active Substance: OMEPRAZOLE
  5. DIPHENHYDRAMINE HYDROCHLORIDE. [Concomitant]
     Active Substance: DIPHENHYDRAMINE HYDROCHLORIDE
  6. METHOTREXATE. [Concomitant]
     Active Substance: METHOTREXATE
  7. MS CONTIN [Concomitant]
     Active Substance: MORPHINE SULFATE
  8. RITUXAN [Suspect]
     Active Substance: RITUXIMAB
     Route: 065
  9. PREDNISONE. [Concomitant]
     Active Substance: PREDNISONE
  10. ACETAMINOPHEN. [Concomitant]
     Active Substance: ACETAMINOPHEN
  11. METHYLPREDNISOLONE. [Concomitant]
     Active Substance: METHYLPREDNISOLONE
  12. RAMIPRIL. [Concomitant]
     Active Substance: RAMIPRIL
  13. DULOXETINE. [Concomitant]
     Active Substance: DULOXETINE
  14. MORPHINE [Concomitant]
     Active Substance: MORPHINE
  15. ROSUVASTATIN. [Concomitant]
     Active Substance: ROSUVASTATIN

REACTIONS (9)
  - Rheumatoid arthritis [Not Recovered/Not Resolved]
  - Respiratory rate increased [Not Recovered/Not Resolved]
  - Neuralgia [Not Recovered/Not Resolved]
  - Blood calcium increased [Not Recovered/Not Resolved]
  - Blood pressure increased [Not Recovered/Not Resolved]
  - Weight decreased [Not Recovered/Not Resolved]
  - Oxygen saturation decreased [Not Recovered/Not Resolved]
  - Joint injury [Not Recovered/Not Resolved]
  - Joint swelling [Not Recovered/Not Resolved]
